FAERS Safety Report 24683594 (Version 1)
Quarter: 2024Q4

REPORT INFORMATION
  Report Type: Spontaneous
  Country: IL (occurrence: IL)
  Receive Date: 20241202
  Receipt Date: 20241202
  Transmission Date: 20250115
  Serious: Yes (Hospitalization, Other)
  Sender: NOVO NORDISK
  Company Number: IL-NOVOPROD-1318391

PATIENT
  Age: 48 Year
  Sex: Male
  Weight: 120 kg

DRUGS (3)
  1. SAXENDA [Suspect]
     Active Substance: LIRAGLUTIDE
     Indication: Body mass index increased
     Dosage: UNK, QD
     Route: 058
  2. AMLODIPINE BESYLATE\VALSARTAN [Concomitant]
     Active Substance: AMLODIPINE BESYLATE\VALSARTAN
     Dosage: UNK
  3. DUPILUMAB [Concomitant]
     Active Substance: DUPILUMAB
     Indication: Dust allergy
     Dosage: 300MG INJECTION ONCE IN 2 WEEKS

REACTIONS (2)
  - Knee operation [Unknown]
  - Pancreatitis [Unknown]

NARRATIVE: CASE EVENT DATE: 20240925
